FAERS Safety Report 15158418 (Version 1)
Quarter: 2018Q3

REPORT INFORMATION
  Report Type: Report from Study
  Country: ZA (occurrence: ZA)
  Receive Date: 20180718
  Receipt Date: 20180718
  Transmission Date: 20181010
  Serious: Yes (Death)
  Sender: FDA-Public Use
  Company Number: ZA-SA-2018SA190482

PATIENT
  Age: 59 Year
  Sex: Female

DRUGS (2)
  1. NOVORAPID [Concomitant]
     Active Substance: INSULIN ASPART
  2. INSULIN GLARGINE [Suspect]
     Active Substance: INSULIN GLARGINE
     Indication: TYPE 2 DIABETES MELLITUS
     Dosage: 60 (UNITS NOT PROVIDED) AT NIGHT
     Route: 058
     Dates: start: 20180101

REACTIONS (2)
  - Cardiac failure [Fatal]
  - Ill-defined disorder [Unknown]

NARRATIVE: CASE EVENT DATE: 20180709
